FAERS Safety Report 10088423 (Version 1)
Quarter: 2014Q2

REPORT INFORMATION
  Report Type: Report from Study
  Country: US (occurrence: US)
  Receive Date: 20140421
  Receipt Date: 20140421
  Transmission Date: 20141212
  Serious: Yes (Other)
  Sender: FDA-Public Use
  Company Number: US-ROCHE-1386315

PATIENT
  Age: 41 Year
  Sex: Female
  Weight: 57.83 kg

DRUGS (5)
  1. BEVACIZUMAB [Suspect]
     Indication: OVARIAN EPITHELIAL CANCER
     Dosage: LAST DOSE PRIOR TO SAE ON 22/OCT/2013 AT 909 MG
     Route: 042
     Dates: start: 20130625
  2. CARBOPLATIN [Suspect]
     Indication: OVARIAN EPITHELIAL CANCER
     Dosage: AUC = 6, LAST DOSE PRIOR TO SAE ON 22/OCT/2013 AT 757 MG
     Route: 042
     Dates: start: 20130625
  3. PACLITAXEL [Suspect]
     Indication: OVARIAN EPITHELIAL CANCER
     Dosage: CYCLE 1-6,
     Route: 042
     Dates: start: 20130625
  4. PACLITAXEL [Suspect]
     Dosage: DOSE REDUCED FROM 80 MG/M2, LAST DOSE PRIOR TO SAE ON 22/OCT/2013 AT 130 MG
     Route: 042
     Dates: start: 20131001
  5. METHYLPREDNISOLON [Concomitant]

REACTIONS (1)
  - Blood creatine phosphokinase increased [Recovered/Resolved with Sequelae]
